FAERS Safety Report 17128354 (Version 1)
Quarter: 2019Q4

REPORT INFORMATION
  Report Type: Spontaneous
  Country: US (occurrence: US)
  Receive Date: 20191206
  Receipt Date: 20191206
  Transmission Date: 20200122
  Serious: Yes (Other)
  Sender: FDA-Public Use
  Company Number: None

PATIENT
  Age: 63 Year
  Sex: Female
  Weight: 105.75 kg

DRUGS (6)
  1. FEBUXOSTAT GENERIC FOR ULORIC [Suspect]
     Active Substance: FEBUXOSTAT
     Indication: GOUT
     Dosage: ?          QUANTITY:1 TABLET(S);?
     Route: 048
     Dates: start: 20191006, end: 20191206
  2. VITAMIN D 2000 UNIT ORAL CAPSULE [Concomitant]
  3. POTASSIUM 10 MEQ [Concomitant]
  4. FEBUXOSTAT 40MG [Concomitant]
     Active Substance: FEBUXOSTAT
  5. BABY ASPIRIN 81 MG [Concomitant]
  6. ATENOLOL-CHLORTHALIDONE 100-25 MG ORAL TABLET [Concomitant]

REACTIONS (6)
  - Insurance issue [None]
  - Myalgia [None]
  - Hypersensitivity [None]
  - Product substitution issue [None]
  - Tinnitus [None]
  - Stomatitis [None]

NARRATIVE: CASE EVENT DATE: 20191122
